FAERS Safety Report 16914478 (Version 1)
Quarter: 2019Q4

REPORT INFORMATION
  Report Type: Spontaneous
  Country: GB (occurrence: GB)
  Receive Date: 20191014
  Receipt Date: 20191014
  Transmission Date: 20200122
  Serious: Yes (Hospitalization)
  Sender: FDA-Public Use
  Company Number: GB-MYLANLABS-2019M1095094

PATIENT
  Age: 46 Year
  Sex: Female
  Weight: 53 kg

DRUGS (4)
  1. LEVOTHYROXINE. [Concomitant]
     Active Substance: LEVOTHYROXINE
     Dosage: UNK
  2. BUTRANS [Suspect]
     Active Substance: BUPRENORPHINE
     Indication: PRODUCT USED FOR UNKNOWN INDICATION
     Dosage: RECENTLY ADVISED TO INCREASE TO 10MGS.
     Route: 062
  3. TRAMADOL. [Suspect]
     Active Substance: TRAMADOL
     Indication: FRACTURE PAIN
     Dosage: 100MGS TWO TO THREE TIMES A DAY MAXIMUM
     Route: 048
     Dates: start: 2018, end: 20190515
  4. CALCIUM + VITAMIN D                /01817601/ [Concomitant]
     Active Substance: CALCIUM LACTATE\CALCIUM PHOSPHATE\CHOLECALCIFEROL
     Dosage: UNK

REACTIONS (6)
  - Hyperreflexia [Recovered/Resolved with Sequelae]
  - Epilepsy [Recovered/Resolved with Sequelae]
  - Paraesthesia [Unknown]
  - Myoclonus [Recovered/Resolved with Sequelae]
  - Migraine [Unknown]
  - Hypoaesthesia [Unknown]

NARRATIVE: CASE EVENT DATE: 20190512
